FAERS Safety Report 25313272 (Version 1)
Quarter: 2025Q2

REPORT INFORMATION
  Report Type: Spontaneous
  Country: US (occurrence: US)
  Receive Date: 20250514
  Receipt Date: 20250514
  Transmission Date: 20250716
  Serious: No
  Sender: VERTEX
  Company Number: US-VERTEX PHARMACEUTICALS-2025-005250

PATIENT
  Age: 78 Year
  Sex: Female

DRUGS (21)
  1. TRIKAFTA [Suspect]
     Active Substance: ELEXACAFTOR\IVACAFTOR\TEZACAFTOR
     Indication: Cystic fibrosis
     Dosage: TWO ORANGE TABLETS IN AM AND ONE BLUE TABLET IN PM
     Route: 048
     Dates: start: 20220119, end: 20250326
  2. AZTREONAM LYSINE [Suspect]
     Active Substance: AZTREONAM LYSINE
     Indication: Cystic fibrosis
     Dosage: ONE 75 MG VIAL VIA NEBULIZER EVERY 8 HOURS USE
     Dates: start: 20150407
  3. ADVAIR HFA [Concomitant]
     Active Substance: FLUTICASONE PROPIONATE\SALMETEROL XINAFOATE
  4. ALBUTEROL SULFATE [Concomitant]
     Active Substance: ALBUTEROL SULFATE
  5. AMOXICILLIN\CLAVULANIC ACID [Concomitant]
     Active Substance: AMOXICILLIN\CLAVULANIC ACID
  6. CAYSTON [Concomitant]
     Active Substance: AZTREONAM
  7. CLOTRIMAZOLE [Concomitant]
     Active Substance: CLOTRIMAZOLE
  8. Coq [Concomitant]
  9. CREON [Concomitant]
     Active Substance: PANCRELIPASE AMYLASE\PANCRELIPASE LIPASE\PANCRELIPASE PROTEASE
  10. FLAX SEEDS [Concomitant]
     Active Substance: FLAX SEEDS
  11. FLUTICASONE FUROATE\SALMETEROL XINAFOATE [Concomitant]
     Active Substance: FLUTICASONE FUROATE\SALMETEROL XINAFOATE
  12. FUROSEMIDE [Concomitant]
     Active Substance: FUROSEMIDE
  13. GARLIC [Concomitant]
     Active Substance: GARLIC
  14. MAGNESIUM [Concomitant]
     Active Substance: MAGNESIUM
  15. OMEPRAZOLE [Concomitant]
     Active Substance: OMEPRAZOLE
  16. PULMOZYME [Concomitant]
     Active Substance: DORNASE ALFA
  17. PULMOZYME [Concomitant]
     Active Substance: DORNASE ALFA
  18. ROYAL JELLY [Concomitant]
     Active Substance: ROYAL JELLY
  19. TOBRAMYCIN [Concomitant]
     Active Substance: TOBRAMYCIN
     Route: 055
  20. VITAMIN C [Concomitant]
     Active Substance: ASCORBIC ACID
  21. VOLTAREN [Concomitant]
     Active Substance: DICLOFENAC SODIUM

REACTIONS (4)
  - Loss of personal independence in daily activities [Not Recovered/Not Resolved]
  - Disturbance in social behaviour [Unknown]
  - Weight decreased [Unknown]
  - COVID-19 [Recovered/Resolved]

NARRATIVE: CASE EVENT DATE: 20250323
